FAERS Safety Report 15096497 (Version 1)
Quarter: 2018Q3

REPORT INFORMATION
  Report Type: Spontaneous
  Country: US (occurrence: US)
  Receive Date: 20180702
  Receipt Date: 20180702
  Transmission Date: 20181010
  Serious: Yes (Other)
  Sender: FDA-Public Use
  Company Number: US-TORRENT-00006288

PATIENT
  Age: 62 Year
  Sex: Female

DRUGS (2)
  1. RISPERIDONE. [Suspect]
     Active Substance: RISPERIDONE
     Indication: CREUTZFELDT-JAKOB DISEASE
     Dosage: UNKNOWN
  2. DONEPEZIL. [Concomitant]
     Active Substance: DONEPEZIL
     Indication: CREUTZFELDT-JAKOB DISEASE
     Dosage: UNKNOWN

REACTIONS (2)
  - Transaminases increased [Unknown]
  - Off label use [Unknown]
